FAERS Safety Report 5710825-8 (Version None)
Quarter: 2008Q2

REPORT INFORMATION
  Report Type: 
  Country: None (occurrence: None)
  Receive Date: 20080417
  Receipt Date: 20080417
  Transmission Date: 20081010
  Serious: Yes (Death)
  Sender: FDA-Public Use
  Company Number: None

PATIENT
  Age: 65 Year
  Sex: Male
  Weight: 69.9 kg

DRUGS (12)
  1. FUROSEMIDE [Suspect]
     Indication: CARDIAC FAILURE CONGESTIVE
     Dosage: 200 MG FUROSEMIDE IN 200CC NS 4.2 ML/HOUR IV DRIP
     Route: 041
     Dates: start: 20080415, end: 20080415
  2. FUROSEMIDE [Suspect]
     Indication: FLUID OVERLOAD
     Dosage: 200 MG FUROSEMIDE IN 200CC NS 4.2 ML/HOUR IV DRIP
     Route: 041
     Dates: start: 20080415, end: 20080415
  3. CARVEDILOL [Concomitant]
  4. ASPIRIN [Concomitant]
  5. AMIODARONE HCL [Concomitant]
  6. MEXILETINE HYDROCHLORIDE [Concomitant]
  7. SPIRONOLACTONE [Concomitant]
  8. ZOCOR [Concomitant]
  9. SYNTHROID [Concomitant]
  10. ZOFRAN [Concomitant]
  11. FUROSEMIDE [Concomitant]
  12. POTASSIUM SUPPLEMENTATION [Concomitant]

REACTIONS (12)
  - BACTERIA URINE IDENTIFIED [None]
  - CARDIO-RESPIRATORY ARREST [None]
  - CREPITATIONS [None]
  - DYSPNOEA [None]
  - GENERAL PHYSICAL HEALTH DETERIORATION [None]
  - HEART RATE DECREASED [None]
  - HYPERHIDROSIS [None]
  - HYPOTENSION [None]
  - NAUSEA [None]
  - OXYGEN SATURATION DECREASED [None]
  - PRODUCTIVE COUGH [None]
  - RESPIRATORY RATE INCREASED [None]
